FAERS Safety Report 6367758-6 (Version None)
Quarter: 2009Q3

REPORT INFORMATION
  Report Type: 
  Country: None (occurrence: None)
  Receive Date: 20090921
  Receipt Date: 20090909
  Transmission Date: 20100115
  Serious: Yes (Other)
  Sender: FDA-Public Use
  Company Number: FR-ELI_LILLY_AND_COMPANY-FR200909002153

PATIENT
  Age: 70 Year
  Sex: Male

DRUGS (3)
  1. CYMBALTA [Suspect]
     Indication: DEPRESSION
     Dosage: 30 MG, DAILY (1/D)
     Route: 048
     Dates: start: 20090827, end: 20090901
  2. CYMBALTA [Suspect]
     Dosage: 60 MG, DAILY (1/D)
     Route: 048
     Dates: start: 20090901
  3. CITALOPRAM HYDROBROMIDE [Concomitant]
     Dosage: 20 MG, DAILY (1/D)
     Route: 048

REACTIONS (2)
  - GAMMA-GLUTAMYLTRANSFERASE INCREASED [None]
  - HEPATOCELLULAR INJURY [None]
